FAERS Safety Report 15601219 (Version 1)
Quarter: 2018Q4

REPORT INFORMATION
  Report Type: Spontaneous
  Country: BE (occurrence: BE)
  Receive Date: 20181109
  Receipt Date: 20181109
  Transmission Date: 20190205
  Serious: Yes (Hospitalization)
  Sender: FDA-Public Use
  Company Number: BE-MYLANLABS-2018M1083062

PATIENT
  Age: 60 Year
  Sex: Male

DRUGS (4)
  1. DOXORUBICIN [Suspect]
     Active Substance: DOXORUBICIN
     Indication: MESOTHELIOMA
     Dosage: 15 MG/M2; AT A TEMPERATURE 42.5-43.0 DEG C
     Route: 033
  2. CISPLATIN. [Suspect]
     Active Substance: CISPLATIN
     Indication: MESOTHELIOMA
     Dosage: 50 MG/M2; AT A TEMPERATURE 42.5-43.0 DEG C
     Route: 033
  3. IFOSFAMIDE. [Suspect]
     Active Substance: IFOSFAMIDE
     Indication: MESOTHELIOMA
     Dosage: 1300 MG/M2
     Route: 042
  4. MESNA. [Suspect]
     Active Substance: MESNA
     Indication: MESOTHELIOMA
     Dosage: 260 MG/M2. LATER WAS REPEATED AT 4 AND 8 H AFTER HIPEC
     Route: 042

REACTIONS (1)
  - Encapsulating peritoneal sclerosis [Recovered/Resolved]
